FAERS Safety Report 19614976 (Version 4)
Quarter: 2021Q3

REPORT INFORMATION
  Report Type: Report from Study
  Country: AT (occurrence: AT)
  Receive Date: 20210727
  Receipt Date: 20210901
  Transmission Date: 20211014
  Serious: Yes (Hospitalization, Other)
  Sender: FDA-Public Use
  Company Number: AT-TAKEDA-2021TUS045469

PATIENT
  Age: 36 Year
  Sex: Female

DRUGS (9)
  1. FOLSAN [Concomitant]
     Active Substance: FOLIC ACID
     Dosage: 5 MILLIGRAM, 1/WEEK
     Route: 065
  2. HUMAN IMMUNOGLOBULIN; HYALURONIDASE [Suspect]
     Active Substance: HUMAN IMMUNOGLOBULIN G\HYALURONIDASE RECOMBINANT HUMAN
     Dosage: 200 MILLILITER
     Route: 058
  3. EUTHYROX [Concomitant]
     Active Substance: LEVOTHYROXINE SODIUM
     Dosage: 50 MICROGRAM, QD
     Route: 065
  4. OLEOVIT D3 [Concomitant]
     Active Substance: CHOLECALCIFEROL
     Dosage: 20 GTT DROPS, 1/WEEK
     Route: 065
  5. ROCALTROL [Concomitant]
     Active Substance: CALCITRIOL
     Dosage: 0,25 MO?WE?FRI
     Route: 065
  6. HUMAN IMMUNOGLOBULIN; HYALURONIDASE [Suspect]
     Active Substance: HUMAN IMMUNOGLOBULIN G\HYALURONIDASE RECOMBINANT HUMAN
     Indication: NEUROPATHY PERIPHERAL
     Dosage: 20 GRAM, Q4WEEKS
     Route: 058
  7. RETACRIT [Concomitant]
     Active Substance: EPOETIN ALFA-EPBX
     Dosage: 4000UNK
     Route: 058
  8. NEPHROTRANS [Concomitant]
     Active Substance: SODIUM BICARBONATE
     Dosage: 500 MILLIGRAM, QID
     Route: 065
  9. HUMAN IMMUNOGLOBULIN; HYALURONIDASE [Suspect]
     Active Substance: HUMAN IMMUNOGLOBULIN G\HYALURONIDASE RECOMBINANT HUMAN
     Dosage: 30 GRAM EVERY 7?10 DAYS
     Route: 058
     Dates: start: 20210729, end: 20210729

REACTIONS (9)
  - Anaphylactic reaction [Recovered/Resolved]
  - Dyspnoea [Recovered/Resolved]
  - Injection site urticaria [Recovered/Resolved]
  - Muscle spasticity [Unknown]
  - Feeling cold [Unknown]
  - Drug intolerance [Unknown]
  - Tremor [Unknown]
  - Off label use [Unknown]
  - Abdominal distension [Unknown]
